FAERS Safety Report 24732803 (Version 2)
Quarter: 2024Q4

REPORT INFORMATION
  Report Type: Report from Study
  Country: US (occurrence: US)
  Receive Date: 20241213
  Receipt Date: 20241227
  Transmission Date: 20250114
  Serious: Yes (Other)
  Sender: ABBVIE
  Company Number: US-ABBVIE-6041276

PATIENT
  Age: 64 Year
  Sex: Female
  Weight: 69 kg

DRUGS (1)
  1. RINVOQ [Suspect]
     Active Substance: UPADACITINIB
     Indication: Colitis ulcerative
     Dosage: FORM STRENGTH: 45 MILLIGRAM
     Route: 048
     Dates: start: 20240819, end: 20241207

REACTIONS (6)
  - Blood iron decreased [Recovering/Resolving]
  - Full blood count decreased [Recovering/Resolving]
  - Pain [Unknown]
  - Rheumatoid arthritis [Unknown]
  - Intestinal haemorrhage [Recovering/Resolving]
  - Pain in extremity [Unknown]

NARRATIVE: CASE EVENT DATE: 20240101
